FAERS Safety Report 16024534 (Version 2)
Quarter: 2023Q4

REPORT INFORMATION
  Report Type: Spontaneous
  Country: ES (occurrence: ES)
  Receive Date: 20190301
  Receipt Date: 20231020
  Transmission Date: 20240110
  Serious: Yes (Other)
  Sender: FDA-Public Use
  Company Number: None

PATIENT
  Age: 49 Year
  Sex: Female

DRUGS (14)
  1. DAPTOMYCIN [Suspect]
     Active Substance: DAPTOMYCIN
     Indication: Arthritis bacterial
     Dosage: 700 MILLIGRAM, Q24H
     Route: 042
     Dates: start: 20190117, end: 20190206
  2. CEFTAROLINE FOSAMIL [Suspect]
     Active Substance: CEFTAROLINE FOSAMIL
     Indication: Arthritis bacterial
     Dosage: 600 MILLIGRAM, Q12H
     Route: 042
     Dates: start: 20190115, end: 20190206
  3. METAMIZOLE SODIUM [Concomitant]
     Active Substance: METAMIZOLE SODIUM
  4. TRAMADOL HYDROCHLORIDE [Concomitant]
     Active Substance: TRAMADOL HYDROCHLORIDE
  5. POTASSIUM CHLORIDE [Concomitant]
     Active Substance: POTASSIUM CHLORIDE
  6. PREGABALIN [Concomitant]
     Active Substance: PREGABALIN
  7. CHOLECALCIFEROL [Concomitant]
     Active Substance: CHOLECALCIFEROL
     Dosage: 25.000 UI/ML, 4 BOTTLES OF 2.5ML
  8. QUETIAPINE FUMARATE [Concomitant]
     Active Substance: QUETIAPINE FUMARATE
  9. DENOSUMAB [Concomitant]
     Active Substance: DENOSUMAB
  10. TAPENTADOL [Concomitant]
     Active Substance: TAPENTADOL
  11. BILASTINE [Concomitant]
     Active Substance: BILASTINE
  12. OMEPRAZOLE [Concomitant]
     Active Substance: OMEPRAZOLE
  13. RIVOTRIL [Concomitant]
     Active Substance: CLONAZEPAM
     Dosage: STRENGHT: 2.5 MG/ML, 1 BOTTLE OF 10 ML
  14. FOLIC ACID [Concomitant]
     Active Substance: FOLIC ACID

REACTIONS (1)
  - Neutropenia [Recovered/Resolved]

NARRATIVE: CASE EVENT DATE: 20190117
